FAERS Safety Report 16705974 (Version 1)
Quarter: 2019Q3

REPORT INFORMATION
  Report Type: Spontaneous
  Country: FR (occurrence: FR)
  Receive Date: 20190815
  Receipt Date: 20190815
  Transmission Date: 20191004
  Serious: Yes (Hospitalization)
  Sender: FDA-Public Use
  Company Number: FR-SA-2019SA214857

PATIENT
  Age: 97 Year
  Sex: Male

DRUGS (8)
  1. INDAPAMIDE. [Suspect]
     Active Substance: INDAPAMIDE
     Indication: HYPERTENSIVE HEART DISEASE
     Dosage: 1.5 MG, QD
     Route: 048
  2. LERCAN [Concomitant]
     Active Substance: LERCANIDIPINE
     Route: 048
  3. AMIODARONE [Concomitant]
     Active Substance: AMIODARONE
     Indication: CARDIOMYOPATHY
     Dosage: 200 MG, QD
     Route: 048
  4. FORLAX [Concomitant]
     Active Substance: POLYETHYLENE GLYCOL 4000
     Dosage: UNK
     Route: 048
  5. OMEPRAZOLE. [Concomitant]
     Active Substance: OMEPRAZOLE
     Route: 048
  6. TARDYFERON [Concomitant]
     Active Substance: FERROUS SULFATE
     Route: 048
  7. SPECIAFOLDINE [Concomitant]
     Active Substance: FOLIC ACID
     Route: 048
  8. DOLIPRANE [Concomitant]
     Active Substance: ACETAMINOPHEN
     Route: 048

REACTIONS (2)
  - Condition aggravated [Recovered/Resolved]
  - Acute kidney injury [Recovered/Resolved]

NARRATIVE: CASE EVENT DATE: 20190107
